FAERS Safety Report 19769959 (Version 2)
Quarter: 2021Q3

REPORT INFORMATION
  Report Type: Spontaneous
  Country: US (occurrence: US)
  Receive Date: 20210901
  Receipt Date: 20210907
  Transmission Date: 20211014
  Serious: No
  Sender: FDA-Public Use
  Company Number: US-RECORDATI-2021003185

PATIENT

DRUGS (10)
  1. SIGNIFOR LAR [Suspect]
     Active Substance: PASIREOTIDE PAMOATE
     Indication: PITUITARY-DEPENDENT CUSHING^S SYNDROME
     Dosage: 10 MILLIGRAM, EVERY 28 DAYS
     Dates: start: 2021
  2. LEVOTHYROXINE. [Concomitant]
     Active Substance: LEVOTHYROXINE
     Indication: HYPOTHYROIDISM
     Dosage: UNK
  3. LANTUS [Concomitant]
     Active Substance: INSULIN GLARGINE
     Indication: TYPE 2 DIABETES MELLITUS
     Dosage: UNK
  4. PANTOPRAZOLE [Concomitant]
     Active Substance: PANTOPRAZOLE
     Indication: GASTROOESOPHAGEAL REFLUX DISEASE
     Dosage: UNK
  5. LIPITOR [Concomitant]
     Active Substance: ATORVASTATIN CALCIUM
     Indication: BLOOD CHOLESTEROL INCREASED
     Dosage: UNK
  6. METOPROLOL. [Concomitant]
     Active Substance: METOPROLOL
     Indication: HYPERTENSION
  7. METFORMIN [Concomitant]
     Active Substance: METFORMIN HYDROCHLORIDE
     Indication: TYPE 2 DIABETES MELLITUS
     Dosage: UNK
  8. LASIX [Concomitant]
     Active Substance: FUROSEMIDE
     Indication: FLUID RETENTION
     Dosage: UNK
  9. POTASSIUM [Concomitant]
     Active Substance: POTASSIUM
     Indication: HYPOKALAEMIA
     Dosage: UNK
  10. OZEMPIC [Concomitant]
     Active Substance: SEMAGLUTIDE
     Indication: TYPE 2 DIABETES MELLITUS
     Dosage: UNK

REACTIONS (1)
  - Nausea [Not Recovered/Not Resolved]

NARRATIVE: CASE EVENT DATE: 20210723
